FAERS Safety Report 14620071 (Version 3)
Quarter: 2018Q3

REPORT INFORMATION
  Report Type: Spontaneous
  Country: CA (occurrence: CA)
  Receive Date: 20180309
  Receipt Date: 20180911
  Transmission Date: 20181010
  Serious: Yes (Hospitalization, Other)
  Sender: FDA-Public Use
  Company Number: CA-CELLTRION INC.-2017CA011383

PATIENT

DRUGS (28)
  1. METRONIDAZOLE. [Concomitant]
     Active Substance: METRONIDAZOLE
  2. SUMATRIPTAN. [Concomitant]
     Active Substance: SUMATRIPTAN
  3. INFLECTRA [Suspect]
     Active Substance: INFLIXIMAB-DYYB
     Indication: CROHN^S DISEASE
     Dosage: 300 MG, CYCLIC (EVERY 0, 2,6 WEEKS, THEN EVERY 8WEEKS)
     Route: 042
     Dates: start: 20170814, end: 20170929
  4. VITAMIN B12 [Concomitant]
     Active Substance: CYANOCOBALAMIN
  5. LOVENOX [Concomitant]
     Active Substance: ENOXAPARIN SODIUM
     Dosage: UNK
     Dates: start: 20171001, end: 20171009
  6. APO HYDROMORPHONE [Concomitant]
     Active Substance: HYDROMORPHONE HYDROCHLORIDE
  7. APO?LORAZEPAM [Concomitant]
     Active Substance: LORAZEPAM
  8. PMS?CIPROFLOXACIN [Concomitant]
  9. EURO?K20 [Concomitant]
  10. CALCIUM CARBONATE. [Concomitant]
     Active Substance: CALCIUM CARBONATE
  11. FLEET ENEMA MINERAL OIL [Concomitant]
  12. HYDROMORPH CONTIN [Concomitant]
     Active Substance: HYDROMORPHONE
  13. BOOST [Concomitant]
     Active Substance: DIETARY SUPPLEMENT
  14. ACETAMINOPHEN AND CODEINE [Concomitant]
     Active Substance: ACETAMINOPHEN\CODEINE PHOSPHATE
  15. APO?PREDNISONE [Concomitant]
     Active Substance: PREDNISONE
  16. INFLECTRA [Suspect]
     Active Substance: INFLIXIMAB-DYYB
     Dosage: 300 MG, CYCLIC (EVERY 0, 2,6 WEEKS, THEN EVERY 8WEEKS)
     Route: 042
     Dates: start: 20170901, end: 20170901
  17. APO?PANTOPRAZOLE [Concomitant]
     Active Substance: PANTOPRAZOLE SODIUM
  18. APO?ATORVASTATIN [Concomitant]
     Active Substance: ATORVASTATIN
  19. CHAMPIX [Concomitant]
     Active Substance: VARENICLINE TARTRATE
  20. VITAMIN D3 [Concomitant]
     Active Substance: CHOLECALCIFEROL
  21. BISACODYL. [Concomitant]
     Active Substance: BISACODYL
  22. APO?ACETAMINOPHEN [Concomitant]
     Active Substance: ACETAMINOPHEN
  23. JAMP K8 [Concomitant]
  24. RATIO?LENOLTEC NO 3 [Concomitant]
     Active Substance: ACETAMINOPHEN\CAFFEINE\CODEINE PHOSPHATE
     Dosage: UNK
  25. JAMP VITAMIN B12 [Concomitant]
  26. PENTASA [Concomitant]
     Active Substance: MESALAMINE
  27. PMS?ASA [Concomitant]
  28. STATEX                             /00036302/ [Concomitant]
     Active Substance: MORPHINE SULFATE

REACTIONS (5)
  - Vomiting [Not Recovered/Not Resolved]
  - Gastrointestinal carcinoma [Unknown]
  - Neuroendocrine tumour [Unknown]
  - Nausea [Recovering/Resolving]
  - Malaise [Unknown]

NARRATIVE: CASE EVENT DATE: 201708
